FAERS Safety Report 8876312 (Version 4)
Quarter: 2014Q2

REPORT INFORMATION
  Report Type: Spontaneous
  Country: US (occurrence: US)
  Receive Date: 20121023
  Receipt Date: 20140404
  Transmission Date: 20141212
  Serious: Yes (Hospitalization, Other)
  Sender: FDA-Public Use
  Company Number: US-ASTRAZENECA-2012SE77874

PATIENT
  Age: 57 Year
  Sex: Male
  Weight: 86.2 kg

DRUGS (21)
  1. NEXIUM [Suspect]
     Indication: GASTROOESOPHAGEAL REFLUX DISEASE
     Route: 048
     Dates: end: 20131115
  2. NEXIUM [Suspect]
     Indication: GASTROOESOPHAGEAL REFLUX DISEASE
     Route: 048
     Dates: end: 20140317
  3. LISINOPRIL [Suspect]
     Indication: HYPERTENSION
     Route: 048
     Dates: start: 2010
  4. LISINOPRIL [Suspect]
     Indication: CARDIAC DISORDER
     Route: 048
     Dates: start: 2010
  5. METOPROLOL SUCC ER [Suspect]
     Indication: CARDIAC DISORDER
     Route: 048
     Dates: start: 2013
  6. PRADAXA [Concomitant]
     Indication: ANTICOAGULANT THERAPY
     Dates: start: 2010
  7. PRADAXA [Concomitant]
     Indication: CARDIAC DISORDER
     Dates: start: 2010
  8. PRADAXA [Concomitant]
     Indication: ANTICOAGULANT THERAPY
     Route: 048
     Dates: start: 201307
  9. PRADAXA [Concomitant]
     Indication: CARDIAC DISORDER
     Route: 048
     Dates: start: 201307
  10. BABY ASPIRIN [Concomitant]
     Indication: CEREBROVASCULAR ACCIDENT PROPHYLAXIS
     Route: 048
     Dates: start: 1990
  11. SIMVASTATIN [Concomitant]
     Indication: HYPERTENSION
     Route: 048
     Dates: start: 2008
  12. FUROSEMIDE [Concomitant]
     Indication: CARDIAC FAILURE CONGESTIVE
     Route: 048
     Dates: start: 1991
  13. NIFEDIPINE ER [Concomitant]
     Indication: CARDIAC DISORDER
     Route: 048
     Dates: start: 20130717
  14. NIFEDIPINE ER [Concomitant]
     Indication: HYPERTENSION
     Route: 048
     Dates: start: 20130717
  15. ISOSORBIDE MONO ER [Concomitant]
     Indication: HYPERTENSION
     Route: 048
     Dates: start: 1996
  16. TUMS [Concomitant]
     Indication: GASTROOESOPHAGEAL REFLUX DISEASE
     Dosage: UNKNOWN BID
     Route: 048
     Dates: start: 20131201
  17. COUMADIN [Concomitant]
     Dates: end: 2010
  18. NITRO [Concomitant]
     Indication: CHEST PAIN
     Dosage: .04 PRN
     Route: 060
     Dates: start: 1990
  19. FISH OIL [Concomitant]
     Indication: SUPPLEMENTATION THERAPY
     Route: 048
  20. VITAMIN D3 [Concomitant]
     Indication: SUPPLEMENTATION THERAPY
     Route: 048
  21. MULTIVITAMIN [Concomitant]
     Indication: SUPPLEMENTATION THERAPY
     Route: 048

REACTIONS (13)
  - Cardiac failure congestive [Not Recovered/Not Resolved]
  - Haemorrhage [Recovered/Resolved]
  - Cerebrovascular accident [Recovered/Resolved]
  - Atrial fibrillation [Not Recovered/Not Resolved]
  - Thrombosis [Unknown]
  - Influenza like illness [Unknown]
  - Rhinorrhoea [Unknown]
  - Viral infection [Unknown]
  - Gastrooesophageal reflux disease [Not Recovered/Not Resolved]
  - Blood pressure increased [Unknown]
  - Dyspepsia [Unknown]
  - Nausea [Not Recovered/Not Resolved]
  - Drug dose omission [Not Recovered/Not Resolved]
